FAERS Safety Report 6158303-9 (Version None)
Quarter: 2009Q2

REPORT INFORMATION
  Report Type: 
  Country: None (occurrence: None)
  Receive Date: 20090417
  Receipt Date: 20090407
  Transmission Date: 20091009
  Serious: Yes (Hospitalization)
  Sender: FDA-Public Use
  Company Number: US-BIOGENIDEC-2007BI016831

PATIENT
  Age: 46 Year
  Sex: Female
  Weight: 84 kg

DRUGS (2)
  1. AVONEX [Suspect]
     Indication: MULTIPLE SCLEROSIS
     Route: 030
     Dates: start: 20000120
  2. AVONEX [Suspect]
     Route: 030
     Dates: start: 20040213

REACTIONS (6)
  - DIZZINESS [None]
  - INTERVERTEBRAL DISC PROTRUSION [None]
  - MIGRAINE [None]
  - MUSCLE SPASMS [None]
  - NAUSEA [None]
  - SPINAL COLUMN STENOSIS [None]
